FAERS Safety Report 25247596 (Version 1)
Quarter: 2025Q2

REPORT INFORMATION
  Report Type: Spontaneous
  Country: US (occurrence: US)
  Receive Date: 20250428
  Receipt Date: 20250428
  Transmission Date: 20250717
  Serious: No
  Sender: ALEXION PHARMACEUTICALS
  Company Number: US-AstraZeneca-CH-00857027A

PATIENT

DRUGS (1)
  1. TEZSPIRE [Suspect]
     Active Substance: TEZEPELUMAB-EKKO
     Route: 065

REACTIONS (8)
  - Fatigue [Unknown]
  - Adverse drug reaction [Unknown]
  - Dizziness [Unknown]
  - Quality of life decreased [Unknown]
  - Impaired work ability [Unknown]
  - Vertigo [Unknown]
  - Mydriasis [Unknown]
  - Nystagmus [Unknown]
